FAERS Safety Report 14735388 (Version 2)
Quarter: 2018Q3

REPORT INFORMATION
  Report Type: Spontaneous
  Country: CA (occurrence: CA)
  Receive Date: 20180409
  Receipt Date: 20180807
  Transmission Date: 20181010
  Serious: Yes (Other)
  Sender: FDA-Public Use
  Company Number: CA-SA-2018SA091133

PATIENT
  Age: 51 Year
  Sex: Female
  Weight: 47 kg

DRUGS (4)
  1. PERJETA [Suspect]
     Active Substance: PERTUZUMAB
     Indication: BREAST CANCER
     Dosage: 420 MG,Q3W
     Route: 042
     Dates: start: 20170104, end: 20170104
  2. PERJETA [Suspect]
     Active Substance: PERTUZUMAB
     Dosage: 420 MG, Q3W
     Route: 042
     Dates: start: 20170307, end: 20170307
  3. TRASTUZUMAB. [Suspect]
     Active Substance: TRASTUZUMAB
     Indication: BREAST CANCER
     Dosage: 285 MG,Q3W
     Route: 042
     Dates: start: 20170510, end: 20170510
  4. DOCETAXEL. [Suspect]
     Active Substance: DOCETAXEL
     Indication: BREAST CANCER
     Dosage: UNK UNK,Q3W
     Route: 051

REACTIONS (2)
  - Chest wall haematoma [Unknown]
  - Chloroma [Unknown]

NARRATIVE: CASE EVENT DATE: 20170411
